FAERS Safety Report 12767478 (Version 2)
Quarter: 2016Q4

REPORT INFORMATION
  Report Type: Other
  Country: US (occurrence: US)
  Receive Date: 20160921
  Receipt Date: 20161021
  Transmission Date: 20170207
  Serious: No
  Sender: FDA-Public Use
  Company Number: US-SHIRE-US201612305

PATIENT
  Age: 82 Year
  Sex: Male
  Weight: 102.4 kg

DRUGS (8)
  1. SYMAX [Concomitant]
     Active Substance: HYOSCYAMINE SULFATE
     Indication: IRRITABLE BOWEL SYNDROME
     Dosage: UNK, (1 PILL) 2X/DAY:BID
     Route: 048
  2. FAMCICLOVIR. [Concomitant]
     Active Substance: FAMCICLOVIR
     Indication: HERPES ZOSTER
     Dosage: UNK, 2X/DAY:BID
     Route: 048
  3. NEXIUM [Concomitant]
     Active Substance: ESOMEPRAZOLE MAGNESIUM
     Indication: IRRITABLE BOWEL SYNDROME
     Dosage: 40 MG, 2X/DAY:BID
     Route: 048
  4. XIIDRA [Suspect]
     Active Substance: LIFITEGRAST
     Indication: DRY EYE
     Dosage: 1 GTT, 2X/DAY:BID
     Route: 047
     Dates: start: 20160908, end: 20160912
  5. SYMAX [Concomitant]
     Active Substance: HYOSCYAMINE SULFATE
     Indication: ABDOMINAL DISCOMFORT
  6. DIOVAN [Concomitant]
     Active Substance: VALSARTAN
     Indication: HYPERTENSION
     Dosage: UNK (1.5 PILL (160/12.5) IN AM + 0.5 PILL (80/6) EVENING
     Route: 048
     Dates: start: 2011
  7. VYTORIN [Concomitant]
     Active Substance: EZETIMIBE\SIMVASTATIN
     Indication: BLOOD CHOLESTEROL
     Dosage: UNK (10/40), 1X/DAY:QD (AT NIGHT)
     Route: 048
  8. LYRICA [Concomitant]
     Active Substance: PREGABALIN
     Indication: PRURITUS
     Dosage: 1 DF, 2X/DAY:BID
     Route: 048
     Dates: start: 2012

REACTIONS (1)
  - Instillation site reaction [Unknown]

NARRATIVE: CASE EVENT DATE: 20160908
